FAERS Safety Report 13880475 (Version 1)
Quarter: 2017Q3

REPORT INFORMATION
  Report Type: Spontaneous
  Country: IT (occurrence: IT)
  Receive Date: 20170818
  Receipt Date: 20170818
  Transmission Date: 20171127
  Serious: Yes (Hospitalization, Other)
  Sender: FDA-Public Use
  Company Number: IT-JNJFOC-20170811446

PATIENT
  Age: 35 Year
  Sex: Female

DRUGS (1)
  1. SIMPONI [Suspect]
     Active Substance: GOLIMUMAB
     Indication: COLITIS ULCERATIVE
     Route: 058
     Dates: start: 20170629, end: 20170629

REACTIONS (4)
  - Product use issue [Unknown]
  - Off label use [Unknown]
  - Optic neuropathy [Recovering/Resolving]
  - Optic neuritis [Recovering/Resolving]

NARRATIVE: CASE EVENT DATE: 20170629
